FAERS Safety Report 6884591-7 (Version None)
Quarter: 2010Q3

REPORT INFORMATION
  Report Type: 
  Country: None (occurrence: None)
  Receive Date: 20100729
  Receipt Date: 20100715
  Transmission Date: 20110219
  Serious: Yes (Hospitalization, Other)
  Sender: FDA-Public Use
  Company Number: PHHY2010CA16430

PATIENT
  Sex: Male

DRUGS (4)
  1. SANDOSTATIN [Suspect]
     Indication: NEUROENDOCRINE TUMOUR
     Dosage: UNK
     Route: 058
     Dates: end: 20080101
  2. SANDOSTATIN [Suspect]
     Dosage: 100 UG, TID
     Route: 058
     Dates: start: 20100301
  3. SANDOSTATIN LAR [Suspect]
     Indication: NEUROENDOCRINE TUMOUR
     Dosage: 30 MG, QMO
     Route: 030
     Dates: start: 20100313
  4. MORPHINE [Concomitant]
     Indication: PAIN

REACTIONS (13)
  - ABDOMINAL MASS [None]
  - ABDOMINAL PAIN [None]
  - DIARRHOEA [None]
  - FLUSHING [None]
  - GASTROINTESTINAL SURGERY [None]
  - LIVER OPERATION [None]
  - METASTASES TO LIVER [None]
  - NAUSEA [None]
  - NEUROENDOCRINE TUMOUR [None]
  - SURGERY [None]
  - VISION BLURRED [None]
  - VISUAL IMPAIRMENT [None]
  - VOMITING [None]
